FAERS Safety Report 5879512-X (Version None)
Quarter: 2008Q3

REPORT INFORMATION
  Report Type: 
  Country: None (occurrence: None)
  Receive Date: 20080911
  Receipt Date: 20080911
  Transmission Date: 20090109
  Serious: Yes (Life-Threatening, Hospitalization, Disabling)
  Sender: FDA-Public Use
  Company Number: None

PATIENT
  Sex: Male
  Weight: 64.7 kg

DRUGS (1)
  1. SORAFENIB 400 MG BAYER [Suspect]
     Indication: PANCREATIC CARCINOMA
     Dosage: 400 MG BID PO
     Route: 048
     Dates: start: 20080902, end: 20080908

REACTIONS (10)
  - ABDOMINAL PAIN UPPER [None]
  - CHOLINERGIC SYNDROME [None]
  - DROOLING [None]
  - HYPERTONIA [None]
  - HYPOPHAGIA [None]
  - MASKED FACIES [None]
  - MUSCLE CONTRACTIONS INVOLUNTARY [None]
  - NERVE INJURY [None]
  - PRESSURE OF SPEECH [None]
  - TONGUE DISORDER [None]
